FAERS Safety Report 18686279 (Version 2)
Quarter: 2021Q1

REPORT INFORMATION
  Report Type: Spontaneous
  Country: US (occurrence: US)
  Receive Date: 20201231
  Receipt Date: 20210122
  Transmission Date: 20210419
  Serious: No
  Sender: FDA-Public Use
  Company Number: US-LUPIN PHARMACEUTICALS INC.-2020-07737

PATIENT
  Sex: Male

DRUGS (1)
  1. TESTOSTERONE GEL 1.62% [Suspect]
     Active Substance: TESTOSTERONE
     Indication: PRODUCT USED FOR UNKNOWN INDICATION
     Dosage: ONCE EVERY 2?3 WEEKS
     Route: 065

REACTIONS (3)
  - Inappropriate schedule of product administration [Unknown]
  - Drug delivery system issue [Unknown]
  - No adverse event [Unknown]
